FAERS Safety Report 6183058-1 (Version None)
Quarter: 2009Q2

REPORT INFORMATION
  Report Type: 
  Country: None (occurrence: None)
  Receive Date: 20090507
  Receipt Date: 20090428
  Transmission Date: 20091009
  Serious: Yes (Other)
  Sender: FDA-Public Use
  Company Number: IE-ELI_LILLY_AND_COMPANY-IE200904006743

PATIENT
  Age: 37 Year
  Sex: Male

DRUGS (6)
  1. ZYPREXA [Suspect]
     Indication: DEPRESSION
     Dosage: 2.5 MG, 2/D
     Route: 048
  2. DIAZEPAM [Concomitant]
     Indication: AFFECTIVE DISORDER
     Dosage: 2 MG, UNK
     Route: 048
  3. VALPROATE SODIUM [Concomitant]
     Indication: AFFECTIVE DISORDER
     Dosage: 400 MG, 2/D
     Route: 048
  4. PROTHIADEN [Concomitant]
  5. MIRTAZAPINE [Concomitant]
  6. SOLIAN [Concomitant]

REACTIONS (8)
  - BRADYKINESIA [None]
  - DYSPHAGIA [None]
  - GAIT DISTURBANCE [None]
  - HYPOKINESIA [None]
  - MASKED FACIES [None]
  - PARKINSONISM [None]
  - POSTURE ABNORMAL [None]
  - SPEECH DISORDER [None]
